FAERS Safety Report 10435594 (Version 3)
Quarter: 2014Q3

REPORT INFORMATION
  Report Type: Spontaneous
  Country: PH (occurrence: PH)
  Receive Date: 20140908
  Receipt Date: 20140926
  Transmission Date: 20150326
  Serious: Yes (Hospitalization, Other)
  Sender: FDA-Public Use
  Company Number: PH-BRISTOL-MYERS SQUIBB COMPANY-21364070

PATIENT
  Age: 65 Year
  Sex: Female
  Weight: 96 kg

DRUGS (1)
  1. ERBITUX [Suspect]
     Active Substance: CETUXIMAB
     Indication: HEPATIC CANCER

REACTIONS (11)
  - Anaphylactic shock [Recovered/Resolved]
  - Chest discomfort [Unknown]
  - Erythema [Recovered/Resolved]
  - Hypoaesthesia [Unknown]
  - Bronchospasm [Recovered/Resolved]
  - Off label use [Unknown]
  - Hot flush [Unknown]
  - Inflammation [Unknown]
  - Pruritus [Recovered/Resolved]
  - Rash generalised [Unknown]
  - Dyspnoea [Unknown]

NARRATIVE: CASE EVENT DATE: 20140827
